FAERS Safety Report 18423492 (Version 1)
Quarter: 2020Q4

REPORT INFORMATION
  Report Type: Report from Study
  Country: US (occurrence: US)
  Receive Date: 20201023
  Receipt Date: 20201023
  Transmission Date: 20210114
  Serious: Yes (Death, Hospitalization)
  Sender: FDA-Public Use
  Company Number: US-ASTRAZENECA-2020SF16498

PATIENT
  Age: 27849 Day
  Sex: Male
  Weight: 77.7 kg

DRUGS (18)
  1. TAGRISSO [Suspect]
     Active Substance: OSIMERTINIB
     Indication: LUNG CARCINOMA CELL TYPE UNSPECIFIED STAGE 0
     Route: 048
     Dates: start: 20200701, end: 20200825
  2. JARDIANCE [Concomitant]
     Active Substance: EMPAGLIFLOZIN
     Route: 048
     Dates: start: 20200825
  3. PIOGLITAZONE. [Concomitant]
     Active Substance: PIOGLITAZONE
     Dosage: 30 MG EVERY MORNING
     Route: 048
     Dates: start: 20200825
  4. IMODIUM [Concomitant]
     Active Substance: LOPERAMIDE HYDROCHLORIDE
     Indication: DIARRHOEA
  5. TYLENOL WITH CODEINE [Concomitant]
     Active Substance: ACETAMINOPHEN\CODEINE PHOSPHATE
  6. PRAVASTATIN. [Concomitant]
     Active Substance: PRAVASTATIN
     Route: 048
     Dates: start: 20200825
  7. ONDANSETRON [Concomitant]
     Active Substance: ONDANSETRON
     Indication: NAUSEA
     Dosage: 8.0MG UNKNOWN
     Route: 048
     Dates: start: 20200825
  8. TRAMADOL. [Concomitant]
     Active Substance: TRAMADOL
  9. TRESIBA [Concomitant]
     Active Substance: INSULIN DEGLUDEC
  10. IBUPROFEN. [Concomitant]
     Active Substance: IBUPROFEN
  11. PREDNISOLONE. [Concomitant]
     Active Substance: PREDNISOLONE
     Route: 048
     Dates: start: 20200825
  12. PROCHLORPERAZINE MALEATE. [Concomitant]
     Active Substance: PROCHLORPERAZINE MALEATE
     Dosage: 10.0MG UNKNOWN
     Route: 048
     Dates: start: 20200825
  13. ZOMETA [Concomitant]
     Active Substance: ZOLEDRONIC ACID
     Indication: BONE DISORDER
  14. ATENOLOL. [Concomitant]
     Active Substance: ATENOLOL
     Route: 048
     Dates: start: 20200825
  15. MEDROL [Concomitant]
     Active Substance: METHYLPREDNISOLONE
     Dosage: 4.0MG UNKNOWN
     Route: 048
     Dates: start: 20200825
  16. TYLENOL [Concomitant]
     Active Substance: ACETAMINOPHEN
     Dosage: 30-300 MG TABLET FOUR TIMES A DAY
     Route: 048
     Dates: start: 20200825
  17. IRBESARTAN. [Concomitant]
     Active Substance: IRBESARTAN
     Route: 048
     Dates: start: 20200825
  18. ASPIRIN. [Concomitant]
     Active Substance: ASPIRIN
     Route: 048
     Dates: start: 20200825

REACTIONS (2)
  - Dyspnoea [Fatal]
  - Pneumonitis [Fatal]

NARRATIVE: CASE EVENT DATE: 20200825
